FAERS Safety Report 11883597 (Version 1)
Quarter: 2016Q1

REPORT INFORMATION
  Report Type: Spontaneous
  Country: US (occurrence: US)
  Receive Date: 20160101
  Receipt Date: 20160101
  Transmission Date: 20160526
  Serious: Yes (Hospitalization, Other)
  Sender: FDA-Public Use
  Company Number: US-CIPLA LTD.-2015US09824

PATIENT

DRUGS (5)
  1. GEMCITABINE [Suspect]
     Active Substance: GEMCITABINE\GEMCITABINE HYDROCHLORIDE
     Indication: PANCREATIC CARCINOMA
     Dosage: 200MG/M2/WEEK BEFORE DOSE ESCALATION
     Route: 065
  2. CETUXIMAB [Suspect]
     Active Substance: CETUXIMAB
     Indication: PANCREATIC CARCINOMA
     Dosage: 400 MG/M2, LOADING DOSE
  3. HEPARIN [Suspect]
     Active Substance: HEPARIN SODIUM
     Route: 065
  4. GEMCITABINE [Suspect]
     Active Substance: GEMCITABINE\GEMCITABINE HYDROCHLORIDE
     Dosage: 150 MG/M2/WEEK
     Route: 065
  5. CETUXIMAB [Suspect]
     Active Substance: CETUXIMAB
     Dosage: 250 MG/M2, WEEKLY MAINTENANCE DOSE

REACTIONS (24)
  - Ascites [Unknown]
  - Respiratory failure [Unknown]
  - Fatigue [Unknown]
  - Platelet count decreased [Unknown]
  - Interstitial lung disease [Unknown]
  - Skin fissures [Unknown]
  - Blood bicarbonate decreased [Unknown]
  - Diarrhoea [Unknown]
  - Thrombocytopenia [Unknown]
  - Dyspnoea [Unknown]
  - Haemoglobin decreased [Unknown]
  - Oesophagitis [Unknown]
  - Acute kidney injury [Unknown]
  - Hypoxia [Unknown]
  - Lung infiltration [Unknown]
  - Rash [Unknown]
  - Constipation [Unknown]
  - Vomiting [Unknown]
  - Blood potassium decreased [Unknown]
  - Blood magnesium decreased [Unknown]
  - Neuropathy peripheral [Unknown]
  - Herpes simplex [Unknown]
  - Nausea [Unknown]
  - Blood sodium decreased [Unknown]
